FAERS Safety Report 7984619-7 (Version None)
Quarter: 2011Q4

REPORT INFORMATION
  Report Type: 
  Country: None (occurrence: None)
  Receive Date: 20111216
  Receipt Date: 20111208
  Transmission Date: 20120403
  Serious: Yes (Hospitalization)
  Sender: FDA-Public Use
  Company Number: JP-JNJFOC-20111111881

PATIENT
  Age: 66 Year
  Sex: Male

DRUGS (2)
  1. TEICOPLANIN [Concomitant]
     Indication: BRONCHOPULMONARY ASPERGILLOSIS
     Route: 042
  2. ITRACONAZOLE [Suspect]
     Indication: BRONCHOPULMONARY ASPERGILLOSIS
     Route: 042
     Dates: start: 20110420, end: 20110513

REACTIONS (1)
  - PULMONARY ALVEOLAR HAEMORRHAGE [None]
